FAERS Safety Report 16371041 (Version 1)
Quarter: 2019Q2

REPORT INFORMATION
  Report Type: Spontaneous
  Country: US (occurrence: US)
  Receive Date: 20190530
  Receipt Date: 20190530
  Transmission Date: 20190711
  Serious: Yes (Death, Other)
  Sender: FDA-Public Use
  Company Number: US-TOLMAR, INC.-2019US005411

PATIENT

DRUGS (8)
  1. DOCETAXEL. [Suspect]
     Active Substance: DOCETAXEL
     Indication: DISEASE PROGRESSION
     Dosage: UNK, UNK
     Route: 065
  2. BISPHOSPHONATES [Concomitant]
     Active Substance: UNSPECIFIED INGREDIENT
     Route: 065
  3. ELIGARD [Suspect]
     Active Substance: LEUPROLIDE ACETATE
     Indication: PROSTATE CANCER METASTATIC
     Dosage: 22.5 MG,  EVERY 3 MONTHS
     Route: 065
  4. ABIRATERONE. [Concomitant]
     Active Substance: ABIRATERONE ACETATE
     Route: 065
  5. ENZALUTAMIDE [Concomitant]
     Active Substance: ENZALUTAMIDE
     Route: 065
  6. ELIGARD [Suspect]
     Active Substance: LEUPROLIDE ACETATE
     Indication: DISEASE PROGRESSION
  7. ORTERONEL [Concomitant]
     Active Substance: ORTERONEL
     Dosage: 300 MG, BID, FOR 28 DAYS EVERY MONTH
     Route: 065
  8. CABAZITAXEL [Concomitant]
     Active Substance: CABAZITAXEL
     Route: 065

REACTIONS (7)
  - Pleural effusion [Unknown]
  - Dyspnoea [Recovered/Resolved]
  - Metastases to bone [Unknown]
  - Failure to thrive [Fatal]
  - Asthenia [Fatal]
  - Prostatic specific antigen increased [Unknown]
  - Disease progression [Unknown]
